FAERS Safety Report 14020984 (Version 4)
Quarter: 2017Q4

REPORT INFORMATION
  Report Type: Report from Study
  Country: US (occurrence: US)
  Receive Date: 20170928
  Receipt Date: 20171127
  Transmission Date: 20180321
  Serious: No
  Sender: FDA-Public Use
  Company Number: PHEH2017US031397

PATIENT
  Sex: Female
  Weight: 61.36 kg

DRUGS (1)
  1. ILARIS [Suspect]
     Active Substance: CANAKINUMAB
     Indication: TUMOUR NECROSIS FACTOR RECEPTOR-ASSOCIATED PERIODIC SYNDROME
     Dosage: UNK, QMO
     Route: 058
     Dates: start: 201708

REACTIONS (9)
  - Pain [Unknown]
  - Fatigue [Unknown]
  - Bone deformity [Unknown]
  - Hypophagia [Unknown]
  - Inflammation [Recovering/Resolving]
  - Abdominal pain [Unknown]
  - Joint dislocation [Not Recovered/Not Resolved]
  - Fatigue [Recovered/Resolved]
  - Arthralgia [Unknown]
